FAERS Safety Report 6291103-8 (Version None)
Quarter: 2009Q3

REPORT INFORMATION
  Report Type: 
  Country: None (occurrence: None)
  Receive Date: 20090730
  Receipt Date: 20090723
  Transmission Date: 20100115
  Serious: Yes (Death, Life-Threatening, Disabling)
  Sender: FDA-Public Use
  Company Number: A0798464A

PATIENT
  Age: 53 Year
  Sex: Female

DRUGS (8)
  1. IMITREX [Suspect]
     Indication: MIGRAINE
     Dosage: 25MG AS REQUIRED
     Route: 048
     Dates: start: 20080321, end: 20090624
  2. MIACALCIN [Concomitant]
  3. LYRICA [Concomitant]
  4. VYTORIN [Concomitant]
  5. TOPROL-XL [Concomitant]
  6. FLEXERIL [Concomitant]
  7. METOPROLOL TARTRATE [Concomitant]
  8. MS CONTIN [Concomitant]

REACTIONS (1)
  - DEATH [None]
